FAERS Safety Report 4628270-5 (Version None)
Quarter: 2005Q2

REPORT INFORMATION
  Report Type: 
  Country: None (occurrence: None)
  Receive Date: 20050406
  Receipt Date: 20050323
  Transmission Date: 20051028
  Serious: Yes (Other)
  Sender: FDA-Public Use
  Company Number: US-KINGPHARMUSA00001-K200500425

PATIENT
  Age: 85 Year
  Sex: Male
  Weight: 63 kg

DRUGS (2)
  1. SONATA [Suspect]
     Indication: INSOMNIA
     Dosage: 5 MG, SINGLE
     Route: 048
     Dates: start: 20050320, end: 20050320
  2. MULTIVITAMIN ^LAPPE^ [Concomitant]
     Dosage: UNK, QD
     Route: 048

REACTIONS (7)
  - BALANCE DISORDER [None]
  - COORDINATION ABNORMAL [None]
  - GAIT DISTURBANCE [None]
  - HYPOAESTHESIA [None]
  - INSOMNIA [None]
  - MUSCLE TIGHTNESS [None]
  - SOMNOLENCE [None]
